FAERS Safety Report 5234596-7 (Version None)
Quarter: 2007Q1

REPORT INFORMATION
  Report Type: 
  Country: None (occurrence: None)
  Receive Date: 20070209
  Receipt Date: 20070206
  Transmission Date: 20070707
  Serious: Yes (Death)
  Sender: FDA-Public Use
  Company Number: KR-JNJFOC-20070200002

PATIENT
  Sex: Female
  Weight: 7 kg

DRUGS (4)
  1. SPORANOX [Suspect]
     Route: 042
  2. SPORANOX [Suspect]
     Indication: FEBRILE NEUTROPENIA
     Route: 042
  3. MEROPEN [Concomitant]
     Indication: PYREXIA
     Route: 042
  4. SANDIMMUNE [Concomitant]
     Indication: TRANSPLANT REJECTION
     Route: 042

REACTIONS (1)
  - ENCEPHALOPATHY [None]
